FAERS Safety Report 9960913 (Version 1)
Quarter: 2014Q1

REPORT INFORMATION
  Report Type: Report from Study
  Country: US (occurrence: US)
  Receive Date: 20140305
  Receipt Date: 20140305
  Transmission Date: 20141002
  Serious: No
  Sender: FDA-Public Use
  Company Number: US-ABBVIE-13P-163-1107972-00

PATIENT
  Sex: Female
  Weight: 108.96 kg

DRUGS (10)
  1. HUMIRA [Suspect]
     Indication: RHEUMATOID ARTHRITIS
     Dates: start: 201302
  2. CIMZIA [Concomitant]
     Indication: RHEUMATOID ARTHRITIS
     Dates: start: 2013
  3. METHOTREXATE [Concomitant]
     Indication: RHEUMATOID ARTHRITIS
  4. SYNTHROID [Concomitant]
     Indication: HYPOTHYROIDISM
  5. ACIPHEX [Concomitant]
     Indication: DYSPEPSIA
  6. NEURONTIN [Concomitant]
     Indication: NEURALGIA
  7. NUCYNTA [Concomitant]
     Indication: NEURALGIA
  8. VITAMIN D [Concomitant]
     Indication: VITAMIN SUPPLEMENTATION
  9. AMLODIPINE [Concomitant]
     Indication: HYPERTENSION
  10. FOLIC ACID [Concomitant]
     Indication: VITAMIN SUPPLEMENTATION

REACTIONS (8)
  - Injection site papule [Recovered/Resolved]
  - Arthropathy [Not Recovered/Not Resolved]
  - Fall [Not Recovered/Not Resolved]
  - Feeling hot [Recovered/Resolved]
  - Pruritus [Recovered/Resolved]
  - Erythema [Recovered/Resolved]
  - Drug ineffective [Not Recovered/Not Resolved]
  - Arthralgia [Not Recovered/Not Resolved]
